FAERS Safety Report 8800741 (Version 2)
Quarter: 2015Q1

REPORT INFORMATION
  Report Type: Report from Study
  Country: US (occurrence: US)
  Receive Date: 20120921
  Receipt Date: 20150227
  Transmission Date: 20150721
  Serious: Yes (Death)
  Sender: FDA-Public Use
  Company Number: US-ROCHE-1124762

PATIENT
  Sex: Female

DRUGS (17)
  1. PERCOCET [Concomitant]
     Active Substance: ACETAMINOPHEN\OXYCODONE HYDROCHLORIDE
  2. CYMBALTA [Concomitant]
     Active Substance: DULOXETINE HYDROCHLORIDE
  3. DOXIL [Concomitant]
     Active Substance: DOXORUBICIN HYDROCHLORIDE
     Route: 065
  4. ARANESP [Concomitant]
     Active Substance: DARBEPOETIN ALFA
     Route: 065
  5. FOLIC ACID. [Concomitant]
     Active Substance: FOLIC ACID
  6. LASIX [Concomitant]
     Active Substance: FUROSEMIDE
     Route: 042
  7. AVASTIN [Suspect]
     Active Substance: BEVACIZUMAB
     Indication: UTERINE CANCER
     Route: 042
  8. TENORMIN [Concomitant]
     Active Substance: ATENOLOL
  9. DECADRON [Concomitant]
     Active Substance: DEXAMETHASONE
     Route: 065
  10. VITAMIN B12 [Concomitant]
     Active Substance: CYANOCOBALAMIN
  11. NEXIUM [Concomitant]
     Active Substance: ESOMEPRAZOLE MAGNESIUM
  12. NORVASC [Concomitant]
     Active Substance: AMLODIPINE BESYLATE
     Route: 065
  13. ALOXI [Concomitant]
     Active Substance: PALONOSETRON HYDROCHLORIDE
     Route: 042
  14. AVASTIN [Suspect]
     Active Substance: BEVACIZUMAB
     Indication: ANAEMIA
  15. MEVACOR [Concomitant]
     Active Substance: LOVASTATIN
  16. ZESTRIL [Concomitant]
     Active Substance: LISINOPRIL
  17. ATENOLOL. [Concomitant]
     Active Substance: ATENOLOL

REACTIONS (16)
  - Death [Fatal]
  - Disease progression [Unknown]
  - Fatigue [Unknown]
  - Dyspnoea exertional [Unknown]
  - Pelvic pain [Recovered/Resolved]
  - Musculoskeletal pain [Unknown]
  - Swelling face [Unknown]
  - Oral pain [Unknown]
  - Paranasal sinus hypersecretion [Unknown]
  - Off label use [Unknown]
  - Oropharyngeal pain [Unknown]
  - Stomatitis [Unknown]
  - Decreased appetite [Recovered/Resolved]
  - Hypertension [Recovered/Resolved]
  - Chest pain [Recovering/Resolving]
  - Pulmonary fibrosis [Unknown]
